FAERS Safety Report 8711385 (Version 2)
Quarter: 2012Q4

REPORT INFORMATION
  Report Type: 
  Country: JP (occurrence: JP)
  Receive Date: 20120807
  Receipt Date: 20120925
  Transmission Date: 20130627
  Serious: Yes (Death, Hospitalization, Other)
  Sender: FDA-Public Use
  Company Number: JP-ROCHE-1069399

PATIENT
  Age: 72 Year
  Sex: Female
  Weight: 55 kg

DRUGS (8)
  1. HERCEPTIN [Suspect]
     Indication: BREAST CANCER
     Route: 041
     Dates: start: 20120123, end: 20120123
  2. HERCEPTIN [Suspect]
     Indication: BREAST CANCER
     Route: 041
     Dates: start: 20120213, end: 20120416
  3. TAXOTERE [Concomitant]
     Indication: ADJUVANT THERAPY
     Route: 041
     Dates: start: 20120123, end: 20120326
  4. GRANISETRON [Concomitant]
     Indication: PROPHYLAXIS
     Route: 042
     Dates: start: 20120123, end: 20120326
  5. DEXART [Concomitant]
     Indication: PROPHYLAXIS
     Route: 042
     Dates: start: 20120123, end: 20120326
  6. NASEA [Concomitant]
     Indication: PROPHYLAXIS
     Route: 048
     Dates: start: 20120123, end: 20120326
  7. NAUZELIN [Concomitant]
     Indication: PROPHYLAXIS
     Route: 048
     Dates: start: 20120123, end: 20120326
  8. MUCOSTA [Concomitant]
     Indication: PROPHYLAXIS
     Route: 048
     Dates: start: 20120123, end: 20120326

REACTIONS (5)
  - Radiation pneumonitis [Fatal]
  - Interstitial lung disease [Fatal]
  - Respiratory failure [Fatal]
  - Pneumothorax [Unknown]
  - Pneumomediastinum [Unknown]
